FAERS Safety Report 12786189 (Version 2)
Quarter: 2020Q4

REPORT INFORMATION
  Report Type: Spontaneous
  Country: US (occurrence: US)
  Receive Date: 20160927
  Receipt Date: 20201006
  Transmission Date: 20210113
  Serious: No
  Sender: FDA-Public Use
  Company Number: US-FRI-1000085642

PATIENT
  Sex: Female

DRUGS (1)
  1. LINZESS [Suspect]
     Active Substance: LINACLOTIDE
     Indication: IRRITABLE BOWEL SYNDROME
     Dosage: 290 ?G EVERY OTHER DAY

REACTIONS (9)
  - Muscle spasms [Unknown]
  - Anal incontinence [Unknown]
  - Anal haemorrhage [Unknown]
  - Diarrhoea [Unknown]
  - Flatulence [Unknown]
  - Abdominal distension [Unknown]
  - Anorectal discomfort [Unknown]
  - Off label use [Unknown]
  - Product dose omission issue [Unknown]
